FAERS Safety Report 21779416 (Version 2)
Quarter: 2022Q4

REPORT INFORMATION
  Report Type: Report from Study
  Country: EG (occurrence: EG)
  Receive Date: 20221226
  Receipt Date: 20221230
  Transmission Date: 20230112
  Serious: Yes (Other)
  Sender: FDA-Public Use
  Company Number: EG-002147023-NVSC2022EG296787

PATIENT
  Age: 42 Year
  Sex: Female

DRUGS (6)
  1. METHOTREXATE [Suspect]
     Active Substance: METHOTREXATE
     Indication: Immune system disorder
     Dosage: UNK (GRADUAL INCREASE OR DECREASE IN THE DOSE)
     Route: 065
     Dates: start: 202204, end: 202209
  2. METHOTREXATE [Suspect]
     Active Substance: METHOTREXATE
     Indication: Psoriatic arthropathy
  3. VITAMIN D [Concomitant]
     Active Substance: VITAMIN D NOS
     Indication: Supplementation therapy
     Dosage: 1 DOSAGE FORM, QOD (STARTED A WEEK AGO) (SHE TAKES THESE VITAMINS IN INTERMITTENT MANNER)
     Route: 048
  4. BIOTENE NOS [Concomitant]
     Active Substance: CETYLPYRIDINIUM CHLORIDE OR SODIUM FLUORIDE OR SODIUM MONOFLUOROPHOSPHATE OR GLUCOSE OXIDASE\LACTOFE
     Indication: Supplementation therapy
     Dosage: 1 DOSAGE FORM, QD (SHE TAKES THESE VITAMINS IN INTERMITTENT MANNER)
     Route: 048
  5. OMEGA [Concomitant]
     Indication: Supplementation therapy
     Dosage: 1 DOSAGE FORM, QD (SHE TAKES THESE VITAMINS IN INTERMITTENT MANNER)
     Route: 048
  6. COSENTYX [Concomitant]
     Active Substance: SECUKINUMAB
     Indication: Product used for unknown indication
     Dosage: UNK
     Route: 065

REACTIONS (8)
  - Feeling abnormal [Not Recovered/Not Resolved]
  - Arthralgia [Not Recovered/Not Resolved]
  - Palpitations [Not Recovered/Not Resolved]
  - Condition aggravated [Not Recovered/Not Resolved]
  - Immune system disorder [Not Recovered/Not Resolved]
  - Alopecia [Not Recovered/Not Resolved]
  - Hair colour changes [Unknown]
  - Product use in unapproved indication [Unknown]

NARRATIVE: CASE EVENT DATE: 20220401
